FAERS Safety Report 12957325 (Version 1)
Quarter: 2016Q4

REPORT INFORMATION
  Report Type: Spontaneous
  Country: US (occurrence: US)
  Receive Date: 20161118
  Receipt Date: 20161118
  Transmission Date: 20170207
  Serious: No
  Sender: FDA-Public Use
  Company Number: US-SHIRE-US201617443

PATIENT
  Sex: Male

DRUGS (1)
  1. XIIDRA [Suspect]
     Active Substance: LIFITEGRAST
     Indication: DRY EYE
     Dosage: 5%GTT, 2X/DAY:BID
     Route: 047
     Dates: start: 201610

REACTIONS (2)
  - Foreign body in eye [Unknown]
  - Eye irritation [Unknown]

NARRATIVE: CASE EVENT DATE: 201610
